FAERS Safety Report 5804411-9 (Version None)
Quarter: 2008Q3

REPORT INFORMATION
  Report Type: 
  Country: None (occurrence: None)
  Receive Date: 20080702
  Receipt Date: 20071023
  Transmission Date: 20090109
  Serious: Yes (Other)
  Sender: FDA-Public Use
  Company Number: US-WYE-H00886407

PATIENT
  Age: 59 Year
  Sex: Male
  Weight: 99.88 kg

DRUGS (2)
  1. ADVIL [Suspect]
     Indication: PAIN
     Dosage: 1 CAPLET DAILY AS NEEDED, ORAL
     Route: 048
     Dates: start: 20070901, end: 20071022
  2. METFORMIN HCL [Concomitant]

REACTIONS (2)
  - BLOOD GLUCOSE DECREASED [None]
  - TREMOR [None]
